FAERS Safety Report 4655336-6 (Version None)
Quarter: 2005Q2

REPORT INFORMATION
  Report Type: 
  Country: None (occurrence: None)
  Receive Date: 20050331
  Receipt Date: 20040831
  Transmission Date: 20051028
  Serious: No
  Sender: FDA-Public Use
  Company Number: US089321

PATIENT

DRUGS (1)
  1. NEULASTA [Suspect]
     Indication: DRUG USE FOR UNKNOWN INDICATION

REACTIONS (2)
  - PYODERMA GANGRENOSUM [None]
  - PYREXIA [None]
